FAERS Safety Report 9477442 (Version 2)
Quarter: 2013Q3

REPORT INFORMATION
  Report Type: Spontaneous
  Country: JP (occurrence: JP)
  Receive Date: 20130826
  Receipt Date: 20130828
  Transmission Date: 20140515
  Serious: Yes (Death)
  Sender: FDA-Public Use
  Company Number: JP-ABBOTT-13X-087-1138239-00

PATIENT
  Age: 48 Year
  Sex: Male

DRUGS (3)
  1. TAKEPRON [Suspect]
     Indication: PRODUCT USED FOR UNKNOWN INDICATION
  2. PROPOFOL [Concomitant]
     Indication: PRODUCT USED FOR UNKNOWN INDICATION
     Route: 050
  3. ANTIHYPERTENSIVES [Concomitant]
     Indication: PRODUCT USED FOR UNKNOWN INDICATION
     Route: 065

REACTIONS (2)
  - Sepsis [Fatal]
  - Toxic epidermal necrolysis [Fatal]
